FAERS Safety Report 5270096-6 (Version None)
Quarter: 2007Q1

REPORT INFORMATION
  Report Type: 
  Country: None (occurrence: None)
  Receive Date: 20070320
  Receipt Date: 20070307
  Transmission Date: 20070707
  Serious: Yes (Other)
  Sender: FDA-Public Use
  Company Number: PHBS2007JP04294

PATIENT
  Age: 50 Year
  Sex: Male

DRUGS (4)
  1. DANTRIUM [Concomitant]
     Dosage: 150 MG/DAY
     Route: 048
  2. LOXONIN [Concomitant]
     Dosage: 60 MG/DAY
     Route: 065
  3. CATLEP [Concomitant]
     Route: 061
  4. LIORESAL [Suspect]
     Indication: SPASTIC PARALYSIS
     Dosage: 15 MG/DAY
     Route: 048

REACTIONS (2)
  - LEUKOPENIA [None]
  - WHITE BLOOD CELL COUNT DECREASED [None]
